FAERS Safety Report 5904260-7 (Version None)
Quarter: 2008Q3

REPORT INFORMATION
  Report Type: 
  Country: None (occurrence: None)
  Receive Date: 20080909
  Receipt Date: 20080519
  Transmission Date: 20090109
  Serious: Yes (Hospitalization)
  Sender: FDA-Public Use
  Company Number: 163-20785-08031544

PATIENT
  Age: 80 Year
  Sex: Female

DRUGS (3)
  1. THALOMID [Suspect]
     Indication: ARTERIOVENOUS MALFORMATION
     Dosage: 300 MG, DAILY, ORAL ; 200 MG, DAILY, ORAL ; 300 MG, DAILY, ORAL
     Route: 048
     Dates: start: 20080117, end: 20080201
  2. THALOMID [Suspect]
     Indication: ARTERIOVENOUS MALFORMATION
     Dosage: 300 MG, DAILY, ORAL ; 200 MG, DAILY, ORAL ; 300 MG, DAILY, ORAL
     Route: 048
     Dates: start: 20080306, end: 20080301
  3. THALOMID [Suspect]
     Indication: ARTERIOVENOUS MALFORMATION
     Dosage: 300 MG, DAILY, ORAL ; 200 MG, DAILY, ORAL ; 300 MG, DAILY, ORAL
     Route: 048
     Dates: start: 20080301

REACTIONS (1)
  - HAEMATOCRIT DECREASED [None]
